FAERS Safety Report 5124455-2 (Version None)
Quarter: 2006Q4

REPORT INFORMATION
  Report Type: 
  Country: None (occurrence: None)
  Receive Date: 20061006
  Receipt Date: 20061002
  Transmission Date: 20070319
  Serious: Yes (Death)
  Sender: FDA-Public Use
  Company Number: MEDI-0004969

PATIENT

DRUGS (2)
  1. SYNAGIS [Suspect]
     Indication: ANTIVIRAL PROPHYLAXIS
     Dosage: SEE IMAGE,INTRAMUSCULAR
     Route: 030
     Dates: start: 20060126, end: 20060221
  2. SYNAGIS [Suspect]
     Indication: ANTIVIRAL PROPHYLAXIS
     Dosage: SEE IMAGE,INTRAMUSCULAR
     Route: 030
     Dates: start: 20060126

REACTIONS (1)
  - DEATH [None]
